FAERS Safety Report 5308716-X (Version None)
Quarter: 2007Q2

REPORT INFORMATION
  Report Type: 
  Country: None (occurrence: None)
  Receive Date: 20070426
  Receipt Date: 20070420
  Transmission Date: 20071010
  Serious: Yes (Hospitalization)
  Sender: FDA-Public Use
  Company Number: CN-GLAXOSMITHKLINE-B0467958A

PATIENT
  Age: 30 Year
  Sex: Male

DRUGS (1)
  1. ZENTEL [Suspect]
     Dosage: 2TAB SINGLE DOSE
     Route: 048
     Dates: start: 20070416, end: 20070416

REACTIONS (2)
  - DIARRHOEA [None]
  - VOMITING [None]
